FAERS Safety Report 10238556 (Version 1)
Quarter: 2014Q2

REPORT INFORMATION
  Report Type: Spontaneous
  Country: JP (occurrence: JP)
  Receive Date: 20140616
  Receipt Date: 20140616
  Transmission Date: 20141212
  Serious: Yes (Other)
  Sender: FDA-Public Use
  Company Number: JP-MYLANLABS-2014S1013728

PATIENT
  Age: 71 Year
  Sex: Female

DRUGS (4)
  1. PACLITAXEL [Suspect]
     Indication: BREAST CANCER METASTATIC
     Route: 041
     Dates: start: 201105, end: 201201
  2. PACLITAXEL [Suspect]
     Indication: BREAST CANCER METASTATIC
     Dates: start: 2012
  3. DEXAMETHASONE [Concomitant]
     Indication: BREAST CANCER METASTATIC
     Dosage: 8.25 MG
     Route: 041
     Dates: start: 201105
  4. TRASTUZUMAB [Concomitant]
     Indication: BREAST CANCER METASTATIC
     Route: 041
     Dates: start: 201105

REACTIONS (3)
  - Erythema of eyelid [Recovered/Resolved]
  - Erythema [Recovered/Resolved]
  - Facial pain [Recovered/Resolved]
